FAERS Safety Report 11124242 (Version 1)
Quarter: 2015Q2

REPORT INFORMATION
  Report Type: Spontaneous
  Country: US (occurrence: None)
  Receive Date: 20150519
  Receipt Date: 20150519
  Transmission Date: 20150821
  Serious: Yes (Hospitalization)
  Sender: FDA-Public Use
  Company Number: None

PATIENT
  Age: 90 Year
  Sex: Female
  Weight: 58.97 kg

DRUGS (8)
  1. AREDS VITAMINS [Concomitant]
  2. ZIOPTAN [Concomitant]
     Active Substance: TAFLUPROST
  3. CALCIUM [Concomitant]
     Active Substance: CALCIUM
  4. GAPAPENTINE ARROW [Suspect]
     Active Substance: GABAPENTIN
     Indication: BACK PAIN
     Dosage: HS
  5. GAPAPENTINE ARROW [Suspect]
     Active Substance: GABAPENTIN
     Indication: NEURALGIA
     Dosage: HS
  6. HYDROCODONE [Concomitant]
     Active Substance: HYDROCODONE
  7. MAGNESIUM + PHOSPHATIDYLSERVINE [Concomitant]
  8. IBUPROFEN. [Concomitant]
     Active Substance: IBUPROFEN

REACTIONS (11)
  - Back pain [None]
  - Pyrexia [None]
  - Agitation [None]
  - Blood pressure increased [None]
  - Musculoskeletal pain [None]
  - Chills [None]
  - Headache [None]
  - Pain in extremity [None]
  - Depression [None]
  - Burning sensation [None]
  - Arthralgia [None]

NARRATIVE: CASE EVENT DATE: 20150513
